FAERS Safety Report 12060854 (Version 1)
Quarter: 2016Q1

REPORT INFORMATION
  Report Type: Spontaneous
  Country: US (occurrence: US)
  Receive Date: 20160210
  Receipt Date: 20160210
  Transmission Date: 20160526
  Serious: Yes (Other)
  Sender: FDA-Public Use
  Company Number: US-BAYER-2016-022158

PATIENT
  Age: 47 Year
  Sex: Female

DRUGS (1)
  1. BETASERON [Suspect]
     Active Substance: INTERFERON BETA-1B
     Indication: MULTIPLE SCLEROSIS
     Dosage: 0.3 MG, QOD
     Route: 058
     Dates: start: 2015

REACTIONS (6)
  - Pain [None]
  - Injection site erythema [None]
  - Injection site pain [None]
  - Injection site reaction [None]
  - Depressed mood [None]
  - Injection site bruising [None]

NARRATIVE: CASE EVENT DATE: 2015
